FAERS Safety Report 10646092 (Version 1)
Quarter: 2014Q4

REPORT INFORMATION
  Report Type: Spontaneous
  Country: DE (occurrence: None)
  Receive Date: 20141209
  Receipt Date: 20141209
  Transmission Date: 20150529
  Serious: Yes (Life-Threatening)
  Sender: FDA-Public Use
  Company Number: FK201405751

PATIENT
  Age: 16 Year
  Sex: Male
  Weight: 80 kg

DRUGS (2)
  1. CEFOTAXIME [Suspect]
     Active Substance: CEFOTAXIME\CEFOTAXIME SODIUM
     Indication: POSTOPERATIVE FEVER
     Dates: start: 20141122
  2. CEFOTAXIME [Suspect]
     Active Substance: CEFOTAXIME\CEFOTAXIME SODIUM
     Indication: INFECTION
     Dates: start: 20141122

REACTIONS (2)
  - Altered state of consciousness [None]
  - Circulatory collapse [None]

NARRATIVE: CASE EVENT DATE: 20141122
